FAERS Safety Report 5575289-6 (Version None)
Quarter: 2007Q4

REPORT INFORMATION
  Report Type: 
  Country: None (occurrence: None)
  Receive Date: 20071221
  Receipt Date: 20071101
  Transmission Date: 20080405
  Serious: Yes (Death)
  Sender: FDA-Public Use
  Company Number: DIIDB-07-0775

PATIENT
  Age: 3 Year
  Sex: Male

DRUGS (1)
  1. DIPRIVAN [Suspect]
     Indication: DRUG USE FOR UNKNOWN INDICATION
     Dosage: INTRAVENOUS
     Route: 042
     Dates: start: 20020101

REACTIONS (1)
  - ANOXIC ENCEPHALOPATHY [None]
